FAERS Safety Report 8630421 (Version 3)
Quarter: 2014Q1

REPORT INFORMATION
  Report Type: Spontaneous
  Country: US (occurrence: US)
  Receive Date: 20120622
  Receipt Date: 20140120
  Transmission Date: 20141002
  Serious: Yes (Death, Other)
  Sender: FDA-Public Use
  Company Number: US-ASTRAZENECA-2012SE34464

PATIENT
  Age: 45 Year
  Sex: Male
  Weight: 117.9 kg

DRUGS (18)
  1. NEXIUM [Suspect]
     Indication: GASTROOESOPHAGEAL REFLUX DISEASE
     Route: 048
  2. NEXIUM [Suspect]
     Indication: GASTRIC DISORDER
     Route: 048
  3. NEXIUM [Suspect]
     Indication: GASTROOESOPHAGEAL REFLUX DISEASE
     Route: 048
     Dates: start: 20041222
  4. NEXIUM [Suspect]
     Indication: GASTRIC DISORDER
     Route: 048
     Dates: start: 20041222
  5. PEPCID [Concomitant]
  6. ZANTAC [Concomitant]
  7. MYLANTA [Concomitant]
  8. DIOVAN [Concomitant]
     Dates: start: 20040216
  9. NORVASC [Concomitant]
     Dates: start: 20040130
  10. CIPROFLOXACIN [Concomitant]
     Dates: start: 20040618
  11. SULPHAMETHOX/TRIMETH [Concomitant]
     Dates: start: 20040902
  12. PROMETHAZINE HCL [Concomitant]
     Dosage: 25 M
     Dates: start: 20040911
  13. ALPRAZOLAM [Concomitant]
     Dates: start: 20040920
  14. SENSIPAR [Concomitant]
     Dates: start: 20120510
  15. VITAMIN D [Concomitant]
     Dates: start: 20120510
  16. NEURONTIN [Concomitant]
     Route: 048
     Dates: start: 20120510
  17. RENVELA [Concomitant]
     Dosage: 800 MG THREE TABLETS WITH EACH MEAL
     Dates: start: 20120510
  18. NOVOLIN [Concomitant]
     Dosage: 70/30 TWICE A DAY 30 UNITS
     Dates: start: 20120510

REACTIONS (10)
  - Death [Fatal]
  - Neuropathic arthropathy [Unknown]
  - Cellulitis [Unknown]
  - Skin ulcer [Unknown]
  - Osteomyelitis chronic [Unknown]
  - Osteoporosis [Unknown]
  - Multiple fractures [Unknown]
  - Ankle fracture [Unknown]
  - Lower limb fracture [Unknown]
  - Wound [Unknown]
